FAERS Safety Report 4950892-2 (Version None)
Quarter: 2006Q1

REPORT INFORMATION
  Report Type: 
  Country: None (occurrence: None)
  Receive Date: 20060322
  Receipt Date: 20021101
  Transmission Date: 20060701
  Serious: Yes (Other)
  Sender: FDA-Public Use
  Company Number: DE-BRISTOL-MYERS SQUIBB COMPANY-13313218

PATIENT
  Age: 61 Year
  Sex: Male
  Weight: 80 kg

DRUGS (11)
  1. REYATAZ [Suspect]
     Indication: HIV INFECTION
     Dosage: THERAPY FOR 8 WEEKS, 1X400 MG
     Dates: start: 20030120
  2. ZERIT [Suspect]
     Indication: HIV INFECTION
     Dosage: THERAPY FOR 17 WEEKS, 2X40 MG;RESTARTED 20-DEC-2000 FOR 50 WEEKS, 2X30 MG
     Dates: start: 19960108
  3. VIDEX [Suspect]
     Indication: HIV INFECTION
     Dosage: THERAPY FOR 108 WEEKS, 1X400 MG;RESTARTED 20-JAN-2003
     Dates: start: 20001220
  4. ZIDOVUDINE [Concomitant]
     Indication: HIV INFECTION
     Dosage: THERAPY FOR 28 WEEKS 3X100 MG, LATER 200/100/200;RESTARTED 15-MAY-1996 FOR 71 WEEKS, 2X250 MG
     Dates: start: 19950303
  5. SAQUINAVIR [Concomitant]
     Indication: HIV INFECTION
     Dosage: 3X3
     Dates: start: 19960326
  6. LAMIVUDINE [Concomitant]
     Indication: HIV INFECTION
     Dosage: 2X150 MG
     Dates: start: 19960515
  7. INDINIVIR SULFATE [Concomitant]
     Indication: HIV INFECTION
     Dosage: 3X800 MG
     Dates: start: 19960729
  8. NELFINAVIR [Concomitant]
     Indication: HIV INFECTION
     Dosage: 3X750 MG
     Dates: start: 19970505
  9. LAMIVUDINE + ZIDOVUDINE [Concomitant]
     Indication: HIV INFECTION
     Dosage: 2X1
     Dates: start: 19980121
  10. LOPINAVIR + RITONAVIR [Concomitant]
     Indication: HIV INFECTION
     Dosage: 2X3
     Dates: start: 20001220
  11. ABACAVIR [Concomitant]
     Indication: HIV INFECTION
     Dosage: THERAPY FOR 58 WEEKS, 2X300 MG; RESTARTED 20-JAN-2003
     Dates: start: 20020111

REACTIONS (22)
  - ARRHYTHMIA [None]
  - ATRIOVENTRICULAR BLOCK SECOND DEGREE [None]
  - BACK PAIN [None]
  - BRONCHITIS [None]
  - CANDIDIASIS [None]
  - COLD SWEAT [None]
  - COLITIS [None]
  - DUODENAL ULCER [None]
  - GYNAECOMASTIA [None]
  - HEAD INJURY [None]
  - HEPATITIS B [None]
  - HERPES ZOSTER [None]
  - HYPERLIPIDAEMIA [None]
  - HYPERURICAEMIA [None]
  - LIPOATROPHY [None]
  - LOSS OF CONSCIOUSNESS [None]
  - MALAISE [None]
  - ORAL CANDIDIASIS [None]
  - PNEUMONIA PRIMARY ATYPICAL [None]
  - POLYNEUROPATHY [None]
  - SURGERY [None]
  - TREMOR [None]
